FAERS Safety Report 25086869 (Version 1)
Quarter: 2025Q1

REPORT INFORMATION
  Report Type: Spontaneous
  Country: AU (occurrence: AU)
  Receive Date: 20250318
  Receipt Date: 20250318
  Transmission Date: 20250409
  Serious: Yes (Other)
  Sender: NOVO NORDISK
  Company Number: AU-NOVOPROD-1331976

PATIENT
  Age: 42 Year
  Sex: Female
  Weight: 107 kg

DRUGS (3)
  1. WEGOVY [Suspect]
     Active Substance: SEMAGLUTIDE
     Indication: Weight control
     Dosage: 0.5 MG, QW
     Route: 058
  2. WEGOVY [Suspect]
     Active Substance: SEMAGLUTIDE
     Indication: Weight control
     Dosage: 1 MG, QW
     Route: 058
     Dates: start: 202502, end: 20250305
  3. ZOLOFT [Concomitant]
     Active Substance: SERTRALINE HYDROCHLORIDE
     Indication: Depression

REACTIONS (16)
  - Angina pectoris [Unknown]
  - Incorrect dose administered by device [Unknown]
  - Device failure [Unknown]
  - Product container issue [Unknown]
  - Hyperhidrosis [Unknown]
  - Tremor [Unknown]
  - Malaise [Unknown]
  - Hypoaesthesia [Unknown]
  - Injection site bruising [Unknown]
  - Presyncope [Unknown]
  - Pallor [Unknown]
  - Feeding disorder [Unknown]
  - Constipation [Unknown]
  - Abdominal pain upper [Unknown]
  - Nausea [Unknown]
  - Asthenia [Unknown]

NARRATIVE: CASE EVENT DATE: 20241201
